FAERS Safety Report 4567144-5 (Version None)
Quarter: 2005Q1

REPORT INFORMATION
  Report Type: 
  Country: None (occurrence: None)
  Receive Date: 20050127
  Receipt Date: 20050111
  Transmission Date: 20050727
  Serious: Yes (Hospitalization)
  Sender: FDA-Public Use
  Company Number: 2005US002345

PATIENT
  Age: 63 Year
  Sex: Female
  Weight: 82.5547 kg

DRUGS (12)
  1. ALOXI [Suspect]
     Indication: PROPHYLAXIS OF NAUSEA AND VOMITING
     Dosage: 0.25 MG SINGLE INTRAVENOUS
     Route: 042
     Dates: start: 20050110, end: 20050110
  2. SODIUM CHLORIDE 0.9% [Suspect]
     Indication: FLUID REPLACEMENT
     Dosage: INTRAVENOUS
     Route: 042
     Dates: start: 20050110, end: 20050110
  3. CISPLATIN [Concomitant]
  4. ETOPOSIDE [Concomitant]
  5. DECADRON [Concomitant]
  6. LORAZPEAM                 (LORAZEPAM) [Concomitant]
  7. FOSAMAX [Concomitant]
  8. XANAX [Concomitant]
  9. ACETYLSALICYLIC ACID SRT [Concomitant]
  10. WELLBUTRIN [Concomitant]
  11. ZOCOR [Concomitant]
  12. ADVAIR DISKUS       (FLUTICASONE PROPIONATE, SALMETEROL XINAFOATE) [Concomitant]

REACTIONS (5)
  - BLOOD URINE [None]
  - DRUG INEFFECTIVE [None]
  - INTRAVASCULAR HAEMOLYSIS [None]
  - MEDICATION ERROR [None]
  - NAUSEA [None]
